FAERS Safety Report 24183893 (Version 1)
Quarter: 2024Q3

REPORT INFORMATION
  Report Type: Spontaneous
  Country: US (occurrence: None)
  Receive Date: 20240806
  Receipt Date: 20240806
  Transmission Date: 20241017
  Serious: Yes (Other)
  Sender: Public
  Company Number: None

PATIENT
  Age: 77 Year
  Sex: Female
  Weight: 64.8 kg

DRUGS (2)
  1. KISQALI [Suspect]
     Active Substance: RIBOCICLIB
     Indication: Breast cancer female
     Dosage: 600 MG DAILY ORAL
     Route: 048
     Dates: start: 20240803
  2. KISQALI [Suspect]
     Active Substance: RIBOCICLIB
     Indication: Metastases to bone

REACTIONS (4)
  - Pruritus [None]
  - Dry skin [None]
  - Alopecia [None]
  - Rash [None]

NARRATIVE: CASE EVENT DATE: 20240806
